FAERS Safety Report 11461521 (Version 1)
Quarter: 2015Q3

REPORT INFORMATION
  Report Type: Spontaneous
  Country: US (occurrence: US)
  Receive Date: 20150831
  Receipt Date: 20150831
  Transmission Date: 20151125
  Serious: No
  Sender: FDA-Public Use
  Company Number: US-ELI_LILLY_AND_COMPANY-US201008000795

PATIENT
  Sex: Female
  Weight: 58.05 kg

DRUGS (11)
  1. WELLBUTRIN XL [Concomitant]
     Active Substance: BUPROPION HYDROCHLORIDE
  2. REBIF [Concomitant]
     Active Substance: INTERFERON BETA-1A
  3. CYMBALTA [Suspect]
     Active Substance: DULOXETINE HYDROCHLORIDE
  4. NEURONTIN [Concomitant]
     Active Substance: GABAPENTIN
     Dosage: 600 MG, 4/D
  5. FENTANYL. [Concomitant]
     Active Substance: FENTANYL
     Indication: PAIN
     Dosage: 75 UG, UNK
  6. LIPITOR [Concomitant]
     Active Substance: ATORVASTATIN CALCIUM
     Indication: BLOOD CHOLESTEROL INCREASED
     Dosage: 10 MG, DAILY (1/D)
  7. EFFEXOR [Concomitant]
     Active Substance: VENLAFAXINE HYDROCHLORIDE
  8. SINGULAIR [Concomitant]
     Active Substance: MONTELUKAST SODIUM
  9. KLONOPIN [Concomitant]
     Active Substance: CLONAZEPAM
     Dosage: 0.5 MG, UNK
  10. PROVIGIL [Concomitant]
     Active Substance: MODAFINIL
     Dosage: 100 MG, 2/D
  11. PERCOCET [Concomitant]
     Active Substance: ACETAMINOPHEN\OXYCODONE HYDROCHLORIDE
     Dosage: UNK, EVERY 6 HRS

REACTIONS (5)
  - Depressed mood [Unknown]
  - Abdominal pain [Unknown]
  - Muscle disorder [Unknown]
  - Abdominal discomfort [Unknown]
  - Hypersensitivity [Unknown]
